FAERS Safety Report 6870053-X (Version None)
Quarter: 2010Q3

REPORT INFORMATION
  Report Type: 
  Country: None (occurrence: None)
  Receive Date: 20100722
  Receipt Date: 20081218
  Transmission Date: 20110219
  Serious: Yes (Other)
  Sender: FDA-Public Use
  Company Number: US-PFIZER INC-2008074649

PATIENT
  Sex: Female
  Weight: 65.306 kg

DRUGS (7)
  1. CHANTIX [Suspect]
     Indication: TOBACCO ABUSE
     Dosage: 0.5 MG, 1X/DAY
     Route: 048
     Dates: start: 20080801, end: 20081015
  2. WELLBUTRIN [Concomitant]
     Indication: DEPRESSION
  3. GEODON [Concomitant]
     Indication: DEPRESSION
  4. ALPRAZOLAM [Concomitant]
  5. ESTROGEN NOS [Concomitant]
  6. PROMETRIUM [Concomitant]
     Indication: MENOPAUSAL SYMPTOMS
     Dosage: UNK
  7. HALCION [Concomitant]
     Indication: INSOMNIA
     Dosage: 0.25 UNK, UNK

REACTIONS (8)
  - ABDOMINAL PAIN UPPER [None]
  - ANXIETY [None]
  - BOWEL MOVEMENT IRREGULARITY [None]
  - CONSTIPATION [None]
  - DIARRHOEA [None]
  - INSOMNIA [None]
  - PANIC ATTACK [None]
  - SUICIDAL IDEATION [None]
